FAERS Safety Report 9331944 (Version 2)
Quarter: 2013Q3

REPORT INFORMATION
  Report Type: Spontaneous
  Country: US (occurrence: US)
  Receive Date: 20130605
  Receipt Date: 20130711
  Transmission Date: 20140515
  Serious: Yes (Hospitalization)
  Sender: FDA-Public Use
  Company Number: CHPA2013US009283

PATIENT
  Age: 69 Year
  Sex: Female

DRUGS (6)
  1. RITEAID PLP [Suspect]
     Indication: SMOKING CESSATION THERAPY
     Dosage: 21 MG, QD
     Route: 062
     Dates: start: 201305, end: 20130521
  2. RITEAID PLP [Suspect]
     Dosage: 21 MG, QD
     Route: 062
     Dates: start: 20130526
  3. RITEAID PLP [Suspect]
     Dosage: 14 MG, UNK
     Route: 062
  4. ADVAIR [Concomitant]
     Indication: CHRONIC OBSTRUCTIVE PULMONARY DISEASE
     Dosage: UNK, QD
  5. COMBIVENT [Concomitant]
     Indication: CHRONIC OBSTRUCTIVE PULMONARY DISEASE
     Dosage: UNK, QD
  6. SPIRIVA [Concomitant]
     Indication: CHRONIC OBSTRUCTIVE PULMONARY DISEASE
     Dosage: UNK, QD

REACTIONS (3)
  - Dyspnoea [Recovering/Resolving]
  - Chills [Recovered/Resolved]
  - Tremor [Recovered/Resolved]
